FAERS Safety Report 4825219-7 (Version None)
Quarter: 2005Q4

REPORT INFORMATION
  Report Type: 
  Country: None (occurrence: None)
  Receive Date: 20051109
  Receipt Date: 20051030
  Transmission Date: 20060501
  Serious: Yes (Hospitalization)
  Sender: FDA-Public Use
  Company Number: 2005BH002701

PATIENT
  Sex: Male

DRUGS (1)
  1. DIANEAL [Suspect]
     Dosage: 2000 ML; 3X A DAY; IP
     Route: 033

REACTIONS (2)
  - C-REACTIVE PROTEIN INCREASED [None]
  - PYREXIA [None]
